FAERS Safety Report 18714492 (Version 2)
Quarter: 2021Q1

REPORT INFORMATION
  Report Type: Report from Study
  Country: US (occurrence: US)
  Receive Date: 20210107
  Receipt Date: 20210323
  Transmission Date: 20210419
  Serious: Yes (Hospitalization)
  Sender: FDA-Public Use
  Company Number: US-SEATTLE GENETICS-2020SGN04938

PATIENT
  Sex: Female

DRUGS (3)
  1. VITAMIN B12 [Concomitant]
     Active Substance: CYANOCOBALAMIN
  2. TUCATINIB [Suspect]
     Active Substance: TUCATINIB
     Indication: BREAST CANCER FEMALE
     Dosage: UNK
     Route: 065
  3. POTASSIUM [Concomitant]
     Active Substance: POTASSIUM

REACTIONS (4)
  - COVID-19 [Unknown]
  - Hypoaesthesia [Unknown]
  - Biopsy lung [Unknown]
  - Blood potassium decreased [Unknown]
